FAERS Safety Report 12330347 (Version 2)
Quarter: 2016Q2

REPORT INFORMATION
  Report Type: Spontaneous
  Country: JP (occurrence: JP)
  Receive Date: 20160504
  Receipt Date: 20160610
  Transmission Date: 20160815
  Serious: Yes (Hospitalization, Other)
  Sender: FDA-Public Use
  Company Number: JP-MACLEODS PHARMACEUTICALS US LTD-MAC2016002704

PATIENT

DRUGS (3)
  1. BENZYLPENICILLIN [Concomitant]
     Active Substance: PENICILLIN G
     Indication: SURGERY
     Dosage: 400 MEGA UNITS ? 6 PER DAY
     Route: 065
  2. LEVOFLOXACIN. [Suspect]
     Active Substance: LEVOFLOXACIN
     Indication: PRODUCT USED FOR UNKNOWN INDICATION
     Dosage: 500 MG, QD
     Route: 065
  3. CEFOPERAZONE/SULBACTAM [Suspect]
     Active Substance: CEFOPERAZONE\SULBACTAM
     Indication: PRODUCT USED FOR UNKNOWN INDICATION
     Dosage: 1 G, BID
     Route: 065

REACTIONS (2)
  - Pyrexia [Unknown]
  - Endocarditis enterococcal [Unknown]

NARRATIVE: CASE EVENT DATE: 20150225
